FAERS Safety Report 18541798 (Version 1)
Quarter: 2020Q4

REPORT INFORMATION
  Report Type: Spontaneous
  Country: US (occurrence: US)
  Receive Date: 20201125
  Receipt Date: 20201125
  Transmission Date: 20210114
  Serious: No
  Sender: FDA-Public Use
  Company Number: US-ASTRAZENECA-2020SF42549

PATIENT
  Sex: Female

DRUGS (1)
  1. FASLODEX [Suspect]
     Active Substance: FULVESTRANT
     Dosage: UNKNOWN
     Route: 030

REACTIONS (8)
  - Pain in extremity [Unknown]
  - Injection site pain [Unknown]
  - Intentional product misuse [Unknown]
  - Injection site bruising [Unknown]
  - Radiation inflammation [Unknown]
  - Musculoskeletal foreign body [Unknown]
  - Radiation associated pain [Unknown]
  - Pain [Unknown]
